FAERS Safety Report 4338498-X (Version None)
Quarter: 2004Q2

REPORT INFORMATION
  Report Type: 
  Country: None (occurrence: None)
  Receive Date: 20040414
  Receipt Date: 20040302
  Transmission Date: 20050107
  Serious: Yes (Hospitalization)
  Sender: FDA-Public Use
  Company Number: JP-GLAXOSMITHKLINE-B0325140A

PATIENT
  Age: 60 Year
  Sex: Female

DRUGS (4)
  1. SAWACILLIN [Suspect]
     Indication: BRONCHITIS
     Dosage: 250MG THREE TIMES PER DAY
     Route: 048
     Dates: start: 20040216, end: 20040218
  2. RIMATIL [Concomitant]
  3. PREDONINE [Concomitant]
  4. CYTOTEC [Concomitant]

REACTIONS (3)
  - DYSPNOEA EXACERBATED [None]
  - LARYNGEAL OEDEMA [None]
  - LARYNGOTRACHEO BRONCHITIS [None]
